FAERS Safety Report 11074481 (Version 5)
Quarter: 2017Q1

REPORT INFORMATION
  Report Type: Report from Study
  Country: BR (occurrence: BR)
  Receive Date: 20150429
  Receipt Date: 20170213
  Transmission Date: 20170428
  Serious: Yes (Hospitalization, Other)
  Sender: FDA-Public Use
  Company Number: PHHY2015BR046554

PATIENT
  Age: 87 Year
  Sex: Female
  Weight: 43 kg

DRUGS (2)
  1. LOSARTAN. [Concomitant]
     Active Substance: LOSARTAN
     Indication: HYPERTENSION
     Dosage: 50 MG, BID
     Route: 065
  2. ACLASTA [Suspect]
     Active Substance: ZOLEDRONIC ACID
     Indication: OSTEOPOROSIS
     Dosage: 5 MG, Q12MO
     Route: 058

REACTIONS (5)
  - Fall [Recovered/Resolved]
  - Femur fracture [Recovered/Resolved]
  - Malaise [Unknown]
  - Incorrect route of drug administration [Unknown]
  - Cardiovascular insufficiency [Recovering/Resolving]

NARRATIVE: CASE EVENT DATE: 20131123
